FAERS Safety Report 19116881 (Version 1)
Quarter: 2021Q2

REPORT INFORMATION
  Report Type: Report from Study
  Country: US (occurrence: US)
  Receive Date: 20210409
  Receipt Date: 20210409
  Transmission Date: 20210717
  Serious: Yes (Hospitalization, Other)
  Sender: FDA-Public Use
  Company Number: US-ASTRAZENECA-2021A280801

PATIENT
  Sex: Female
  Weight: 79.8 kg

DRUGS (5)
  1. TAGRISSO [Suspect]
     Active Substance: OSIMERTINIB
     Indication: LUNG ADENOCARCINOMA STAGE IV
     Route: 048
     Dates: start: 20210315
  2. METHOTREXATE. [Concomitant]
     Active Substance: METHOTREXATE
  3. NAPRAXEN [Concomitant]
  4. TAGRISSO [Suspect]
     Active Substance: OSIMERTINIB
     Indication: LUNG ADENOCARCINOMA STAGE IV
     Route: 048
     Dates: start: 202102
  5. DOXY [Concomitant]
     Active Substance: DOXYCYCLINE

REACTIONS (17)
  - Erosive oesophagitis [Unknown]
  - Fluid overload [Unknown]
  - Crying [Not Recovered/Not Resolved]
  - Platelet count decreased [Recovered/Resolved]
  - Fatigue [Unknown]
  - Faeces discoloured [Recovered/Resolved]
  - Gastric ulcer [Unknown]
  - Weight decreased [Unknown]
  - Swelling [Unknown]
  - Malaise [Not Recovered/Not Resolved]
  - Rash [Unknown]
  - Abdominal pain upper [Unknown]
  - Gastric haemorrhage [Recovered/Resolved]
  - Pyrexia [Unknown]
  - Lethargy [Unknown]
  - Gait disturbance [Unknown]
  - White blood cell count decreased [Recovered/Resolved]
